FAERS Safety Report 6181718-X (Version None)
Quarter: 2009Q2

REPORT INFORMATION
  Report Type: 
  Country: None (occurrence: None)
  Receive Date: 20090422
  Receipt Date: 20090409
  Transmission Date: 20091009
  Serious: Yes (Hospitalization)
  Sender: FDA-Public Use
  Company Number: 2009020008

PATIENT
  Sex: Female

DRUGS (4)
  1. IMMUNE GLOBULIN INTRAVENOUS (HUMAN) [Suspect]
     Indication: HAEMORRHAGE
     Dosage: 1500 IU
     Dates: start: 20090325, end: 20090325
  2. IMMUNE GLOBULIN INTRAVENOUS (HUMAN) [Suspect]
     Indication: PROPHYLAXIS AGAINST RH ISOIMMUNISATION
     Dosage: 1500 IU
     Dates: start: 20090325, end: 20090325
  3. ANTIBIOTICS (ANTIBIOTICS) [Concomitant]
  4. CEFRADINE (CEFRADINE) [Concomitant]

REACTIONS (8)
  - ABDOMINAL PAIN [None]
  - DELIRIUM [None]
  - HAEMORRHAGE [None]
  - HEADACHE [None]
  - MALAISE [None]
  - NAUSEA [None]
  - URINARY TRACT INFECTION [None]
  - VISUAL IMPAIRMENT [None]
